FAERS Safety Report 5625366-6 (Version None)
Quarter: 2008Q1

REPORT INFORMATION
  Report Type: 
  Country: None (occurrence: None)
  Receive Date: 20080211
  Receipt Date: 20080204
  Transmission Date: 20080703
  Serious: Yes (Death)
  Sender: FDA-Public Use
  Company Number: 2008-00768

PATIENT
  Age: 46 Year
  Sex: Female

DRUGS (7)
  1. TEMAZEPAM [Suspect]
  2. LORAZEPAM [Suspect]
  3. METHYLPHYENIDATE HCL [Suspect]
  4. HYDROCODONE BITARTRATE + ACETAMINOPHEN [Suspect]
  5. SKELETAL MUSCLE RELAXANTS() [Suspect]
  6. COCAINE(COCAINE) [Suspect]
  7. ETHANOL(ETHANOL) [Suspect]

REACTIONS (1)
  - DEATH [None]
